FAERS Safety Report 9270646 (Version 2)
Quarter: 2013Q2

REPORT INFORMATION
  Report Type: Report from Study
  Country: JP (occurrence: JP)
  Receive Date: 20130503
  Receipt Date: 20130529
  Transmission Date: 20140414
  Serious: Yes (Death, Hospitalization, Other)
  Sender: FDA-Public Use
  Company Number: JP-CELGENEUS-087-50794-11120949

PATIENT
  Age: 75 Year
  Sex: Male
  Weight: 43 kg

DRUGS (15)
  1. VIDAZA [Suspect]
     Indication: MYELODYSPLASTIC SYNDROME
     Dosage: 75 MILLIGRAM/SQ. METER
     Route: 041
     Dates: start: 20110624, end: 20110630
  2. VIDAZA [Suspect]
     Dosage: 75 MILLIGRAM/SQ. METER
     Route: 041
     Dates: start: 20110825, end: 20110831
  3. VIDAZA [Suspect]
     Dosage: 75 MILLIGRAM/SQ. METER
     Route: 041
     Dates: start: 20110926, end: 20111004
  4. VIDAZA [Suspect]
     Dosage: 75 MILLIGRAM/SQ. METER
     Route: 041
     Dates: start: 20111031, end: 20111109
  5. VIDAZA [Suspect]
     Dosage: 75 MILLIGRAM/SQ. METER
     Route: 041
     Dates: start: 20111205, end: 20111213
  6. VIDAZA [Suspect]
     Dosage: 75 MILLIGRAM/SQ. METER
     Route: 041
     Dates: start: 20120110, end: 20120118
  7. VIDAZA [Suspect]
     Route: 041
  8. ZYLORIC [Concomitant]
     Indication: PRODUCT USED FOR UNKNOWN INDICATION
     Dosage: 300 MILLIGRAM
     Route: 048
     Dates: start: 20110624
  9. DIFLUCAN [Concomitant]
     Indication: PRODUCT USED FOR UNKNOWN INDICATION
     Dosage: 200 MILLIGRAM
     Route: 048
     Dates: start: 20110624
  10. TAKEPRON [Concomitant]
     Indication: PRODUCT USED FOR UNKNOWN INDICATION
     Dosage: 60 MILLIGRAM
     Route: 041
     Dates: start: 20110711, end: 20110728
  11. TAKEPRON [Concomitant]
     Dosage: 60 MILLIGRAM
     Route: 041
     Dates: start: 20110808, end: 20110809
  12. PARIET [Concomitant]
     Indication: PRODUCT USED FOR UNKNOWN INDICATION
     Dosage: 20 MILLIGRAM
     Route: 048
     Dates: start: 20110729
  13. CEFEPIME DIHYDROCHLORIDE HYDRATE [Concomitant]
     Indication: PRODUCT USED FOR UNKNOWN INDICATION
     Dosage: 4 GRAM
     Route: 048
     Dates: start: 20110714, end: 20110727
  14. AMIKACIN SULFATE [Concomitant]
     Indication: PRODUCT USED FOR UNKNOWN INDICATION
     Dosage: 400 MILLIGRAM
     Route: 048
     Dates: start: 20110714, end: 20110727
  15. ANTIBIOTICS [Concomitant]
     Indication: FEBRILE NEUTROPENIA
     Route: 065
     Dates: start: 20110714

REACTIONS (4)
  - Pneumonia [Fatal]
  - Febrile neutropenia [Recovered/Resolved]
  - Upper gastrointestinal haemorrhage [Recovered/Resolved]
  - Upper gastrointestinal haemorrhage [Recovered/Resolved]
